FAERS Safety Report 8795557 (Version 1)
Quarter: 2012Q4

REPORT INFORMATION
  Report Type: 
  Country: US (occurrence: US)
  Receive Date: 20120917
  Receipt Date: 20120917
  Transmission Date: 20130627
  Serious: No
  Sender: FDA-Public Use
  Company Number: US-PFIZER INC-2012228181

PATIENT
  Age: 67 Year
  Sex: Female
  Weight: 72.56 kg

DRUGS (8)
  1. LYRICA [Suspect]
     Indication: PAIN IN EXTREMITY
     Dosage: 50 mg, UNK
     Route: 048
     Dates: start: 20120904, end: 20120905
  2. PREDNISONE [Suspect]
     Indication: PAIN IN EXTREMITY
     Dosage: UNK
     Route: 048
     Dates: start: 201208, end: 20120901
  3. TYLENOL [Concomitant]
     Indication: PAIN IN EXTREMITY
     Dosage: 1000 mg (two tablets of 500mg ), daily
     Route: 048
     Dates: start: 2012, end: 2012
  4. IBUPROFEN [Concomitant]
     Indication: PAIN IN EXTREMITY
     Dosage: 400 mg (two tablets of 200mg), daily
     Route: 048
     Dates: start: 2012, end: 2012
  5. HYDROCHLOROTHIAZIDE/LOSARTAN [Concomitant]
     Indication: HYPERTENSION
     Dosage: 100/25 mg, daily
  6. CLONIDINE [Concomitant]
     Indication: HYPERTENSION
     Dosage: 0.2 mg, 2x/day
  7. CLONIDINE [Concomitant]
     Dosage: 2 mg, 2x/day
  8. NEXIUM [Concomitant]
     Indication: GASTRIC DISORDER
     Dosage: UNK, as needed

REACTIONS (4)
  - Hypersensitivity [Recovered/Resolved]
  - Feeling drunk [Recovered/Resolved]
  - Lip swelling [Recovered/Resolved]
  - Pruritus [Not Recovered/Not Resolved]
